FAERS Safety Report 9167524 (Version 1)
Quarter: 2013Q1

REPORT INFORMATION
  Report Type: Spontaneous
  Country: ES (occurrence: None)
  Receive Date: 20130304
  Receipt Date: 20130304
  Transmission Date: 20140127
  Serious: Yes (Hospitalization)
  Sender: FDA-Public Use
  Company Number: A1014214A

PATIENT
  Age: 57 Year
  Sex: Female

DRUGS (3)
  1. ROPINIROLE HYDROCHLORIDE [Suspect]
  2. RASAGILINE MESILATE [Suspect]
  3. LEVODOPA [Suspect]

REACTIONS (3)
  - Psychotic disorder [None]
  - Hallucination, auditory [None]
  - Delusion [None]
